FAERS Safety Report 8322130-4 (Version None)
Quarter: 2012Q2

REPORT INFORMATION
  Report Type: 
  Country: None (occurrence: None)
  Receive Date: 20120430
  Receipt Date: 20120418
  Transmission Date: 20120825
  Serious: Yes (Other)
  Sender: FDA-Public Use
  Company Number: DE-ROCHE-1061042

PATIENT
  Sex: Male
  Weight: 90 kg

DRUGS (16)
  1. IRINOTECAN HCL [Concomitant]
     Route: 042
     Dates: start: 20111101, end: 20120101
  2. FLUOROURACIL [Concomitant]
     Route: 042
     Dates: start: 20100801, end: 20110201
  3. DEXAMETHASONE SODIUM PHOSPHATE [Concomitant]
     Indication: COLON CANCER METASTATIC
     Route: 042
     Dates: start: 20120326
  4. BEVACIZUMAB [Suspect]
     Indication: COLON CANCER METASTATIC
     Route: 042
     Dates: start: 20120326
  5. LEUCOVORIN CALCIUM [Concomitant]
     Route: 042
     Dates: start: 20100801, end: 20110201
  6. BEVACIZUMAB [Suspect]
     Route: 042
     Dates: start: 20100801, end: 20110201
  7. LEUCOVORIN CALCIUM [Concomitant]
     Indication: COLON CANCER METASTATIC
     Route: 042
     Dates: start: 20120326
  8. FLUOROURACIL [Concomitant]
     Indication: COLON CANCER METASTATIC
     Route: 042
     Dates: start: 20120326
  9. LEUCOVORIN CALCIUM [Concomitant]
     Route: 042
     Dates: start: 20111101, end: 20120101
  10. BEVACIZUMAB [Suspect]
     Route: 042
     Dates: start: 20011101, end: 20120101
  11. FLUOROURACIL [Concomitant]
     Route: 042
     Dates: start: 20111101, end: 20120101
  12. FLUOROURACIL [Concomitant]
     Route: 042
     Dates: start: 20110901
  13. ONDANSETRON [Concomitant]
     Indication: PROPHYLAXIS OF NAUSEA AND VOMITING
     Route: 042
     Dates: start: 20120326
  14. IRINOTECAN HCL [Concomitant]
     Indication: COLON CANCER METASTATIC
     Route: 042
     Dates: start: 20120326
  15. IRINOTECAN HCL [Concomitant]
     Route: 042
     Dates: start: 20100801, end: 20110201
  16. DEXAMETHASONE SODIUM PHOSPHATE [Concomitant]
     Indication: PROPHYLAXIS OF NAUSEA AND VOMITING

REACTIONS (2)
  - DUODENAL ULCER PERFORATION [None]
  - NEOPLASM MALIGNANT [None]
